FAERS Safety Report 9848625 (Version 1)
Quarter: 2014Q1

REPORT INFORMATION
  Report Type: Spontaneous
  Country: US (occurrence: None)
  Receive Date: 20140127
  Receipt Date: 20140127
  Transmission Date: 20141002
  Serious: Yes (Hospitalization)
  Sender: FDA-Public Use
  Company Number: None

PATIENT
  Age: 65 Year
  Sex: Female
  Weight: 63.96 kg

DRUGS (12)
  1. LISINOPRIL [Suspect]
     Indication: HYPERTENSION
     Route: 048
     Dates: start: 20131211, end: 20140106
  2. PANTOPRAZOLE [Concomitant]
  3. AMLODIPINE [Concomitant]
  4. TROSPIUM(PRN) [Concomitant]
  5. FLUTICASONE [Concomitant]
  6. PREMARIN VAGINAL CREAM(PRN) [Concomitant]
  7. FISH OIL [Concomitant]
  8. CALCLIUM CITRATE WITH D [Concomitant]
  9. GLUCOSAMINE [Concomitant]
  10. ARTHRITIS STRENGTH ACETAMINOPHEN [Concomitant]
  11. LORATADINE [Concomitant]
  12. VITAMIN D3 [Concomitant]

REACTIONS (2)
  - Chest discomfort [None]
  - No therapeutic response [None]
